FAERS Safety Report 6644946-2 (Version None)
Quarter: 2010Q1

REPORT INFORMATION
  Report Type: 
  Country: None (occurrence: None)
  Receive Date: 20100322
  Receipt Date: 20100310
  Transmission Date: 20100710
  Serious: Yes (Hospitalization)
  Sender: FDA-Public Use
  Company Number: PHHY2009IT48460

PATIENT
  Sex: Female

DRUGS (3)
  1. ZOMETA [Suspect]
     Indication: MULTIPLE MYELOMA
     Dosage: 4 MG/VIALS
     Route: 042
     Dates: start: 20050505, end: 20080128
  2. VELCADE [Concomitant]
     Dosage: 2 MG/EVERY THREE DAYS
  3. DECADRON [Concomitant]
     Dosage: 20 MG/EVERY TWO DAYS

REACTIONS (3)
  - ABSCESS ORAL [None]
  - MAXILLOFACIAL OPERATION [None]
  - OSTEONECROSIS [None]
